FAERS Safety Report 5766720-1 (Version None)
Quarter: 2008Q2

REPORT INFORMATION
  Report Type: 
  Country: None (occurrence: None)
  Receive Date: 20080609
  Receipt Date: 20080317
  Transmission Date: 20081010
  Serious: Yes (Other)
  Sender: FDA-Public Use
  Company Number: ADR0512008

PATIENT
  Age: 79 Year
  Sex: Male
  Weight: 73.4827 kg

DRUGS (4)
  1. RAMIPRIL [Suspect]
     Dosage: 2.5 MG/DAY, ORAL
     Route: 048
  2. ALTACE [Concomitant]
  3. COZAAR [Concomitant]
  4. COREG [Concomitant]

REACTIONS (2)
  - CARDIAC FAILURE [None]
  - DYSPNOEA PAROXYSMAL NOCTURNAL [None]
